FAERS Safety Report 10729550 (Version 1)
Quarter: 2015Q1

REPORT INFORMATION
  Report Type: Spontaneous
  Country: US (occurrence: US)
  Receive Date: 20150122
  Receipt Date: 20150122
  Transmission Date: 20150721
  Serious: No
  Sender: FDA-Public Use
  Company Number: US-009507513-1501USA008032

PATIENT

DRUGS (1)
  1. ZETIA [Suspect]
     Active Substance: EZETIMIBE
     Dosage: UNK
     Route: 048

REACTIONS (6)
  - Dyspnoea [Unknown]
  - Pain in extremity [Unknown]
  - Dizziness [Unknown]
  - Choking [Unknown]
  - Chest discomfort [Unknown]
  - Cough [Unknown]
